FAERS Safety Report 11167571 (Version 1)
Quarter: 2015Q2

REPORT INFORMATION
  Report Type: Report from Study
  Country: US (occurrence: US)
  Receive Date: 20150605
  Receipt Date: 20150605
  Transmission Date: 20150821
  Serious: Yes (Hospitalization)
  Sender: FDA-Public Use
  Company Number: US-ABBVIE-15K-163-1400142-00

PATIENT
  Age: 61 Year
  Sex: Female
  Weight: 39.95 kg

DRUGS (5)
  1. HUMIRA [Suspect]
     Active Substance: ADALIMUMAB
     Indication: CROHN^S DISEASE
     Route: 058
     Dates: start: 2004, end: 2006
  2. VANCOMYCIN [Suspect]
     Active Substance: VANCOMYCIN
     Indication: PRODUCT USED FOR UNKNOWN INDICATION
     Dosage: TABLET CRUSHED AND TAKEN AS INJECTION
     Route: 030
     Dates: start: 201412
  3. CIMZIA [Suspect]
     Active Substance: CERTOLIZUMAB PEGOL
     Indication: PRODUCT USED FOR UNKNOWN INDICATION
     Route: 065
  4. VITAMIN B12 [Concomitant]
     Active Substance: CYANOCOBALAMIN
     Indication: PRODUCT USED FOR UNKNOWN INDICATION
  5. HUMIRA [Suspect]
     Active Substance: ADALIMUMAB
     Route: 058
     Dates: start: 2009

REACTIONS (17)
  - Fall [Recovered/Resolved]
  - Injection site swelling [Recovered/Resolved]
  - Intentional product misuse [Recovered/Resolved]
  - Musculoskeletal pain [Recovered/Resolved]
  - Drug ineffective [Unknown]
  - Injection site pain [Unknown]
  - Cellulitis [Not Recovered/Not Resolved]
  - Intentional product use issue [Recovered/Resolved]
  - Expired product administered [Recovered/Resolved]
  - Injection site warmth [Recovered/Resolved]
  - Clostridium difficile infection [Recovered/Resolved]
  - Injection site pain [Not Recovered/Not Resolved]
  - Weight decreased [Recovered/Resolved]
  - Injection site pain [Recovered/Resolved]
  - Drug administered at inappropriate site [Recovered/Resolved]
  - Injection site erythema [Recovered/Resolved]
  - Wrong technique in drug usage process [Recovered/Resolved]

NARRATIVE: CASE EVENT DATE: 2004
